FAERS Safety Report 9805801 (Version 1)
Quarter: 2014Q1

REPORT INFORMATION
  Report Type: Spontaneous
  Country: US (occurrence: None)
  Receive Date: 20140108
  Receipt Date: 20140108
  Transmission Date: 20141002
  Serious: Yes (Hospitalization)
  Sender: FDA-Public Use
  Company Number: None

PATIENT
  Age: 64 Year
  Sex: Male
  Weight: 133.3 kg

DRUGS (2)
  1. ENOXAPARIN (GENERIC) [Suspect]
     Indication: AORTIC VALVE REPLACEMENT
     Dosage: ML SQ
     Route: 058
     Dates: start: 20130823, end: 20130903
  2. WARFARIN [Suspect]
     Route: 048
     Dates: start: 20101210

REACTIONS (4)
  - Purpura [None]
  - International normalised ratio decreased [None]
  - Haemorrhoidal haemorrhage [None]
  - Laboratory test abnormal [None]
